FAERS Safety Report 4877922-0 (Version None)
Quarter: 2006Q1

REPORT INFORMATION
  Report Type: 
  Country: None (occurrence: None)
  Receive Date: 20060110
  Receipt Date: 20060104
  Transmission Date: 20060701
  Serious: Yes (Other)
  Sender: FDA-Public Use
  Company Number: 2005092493

PATIENT
  Sex: Male

DRUGS (3)
  1. CELEBREX [Suspect]
     Indication: RHEUMATOID ARTHRITIS
     Dates: end: 20050208
  2. ETODOLAC [Suspect]
     Indication: RHEUMATOID ARTHRITIS
     Dosage: 900 MG (300 MG, 3 IN 1 D)
     Dates: start: 20050201
  3. TYLENOL [Suspect]
     Indication: RHEUMATOID ARTHRITIS
     Dosage: 2600 MG (650 MG, 1 IN 1 D)
     Dates: start: 20050201

REACTIONS (5)
  - ARTHRITIS [None]
  - INADEQUATE ANALGESIA [None]
  - INGROWING NAIL [None]
  - MIDDLE INSOMNIA [None]
  - MUSCULOSKELETAL STIFFNESS [None]
